FAERS Safety Report 6712803-9 (Version None)
Quarter: 2010Q2

REPORT INFORMATION
  Report Type: 
  Country: None (occurrence: None)
  Receive Date: 20100506
  Receipt Date: 20090706
  Transmission Date: 20101027
  Serious: Yes (Hospitalization)
  Sender: FDA-Public Use
  Company Number: A0797172A

PATIENT
  Age: 64 Year
  Sex: Female

DRUGS (2)
  1. AUGMENTIN [Suspect]
     Indication: PNEUMONIA
  2. BETASERON [Concomitant]
     Indication: MULTIPLE SCLEROSIS
     Dosage: 8MU ALTERNATE DAYS

REACTIONS (1)
  - CLOSTRIDIUM DIFFICILE COLITIS [None]
